FAERS Safety Report 7068646-2 (Version None)
Quarter: 2010Q4

REPORT INFORMATION
  Report Type: 
  Country: None (occurrence: None)
  Receive Date: 20101027
  Receipt Date: 20101027
  Transmission Date: 20110411
  Serious: Yes (Life-Threatening, Hospitalization)
  Sender: FDA-Public Use
  Company Number: None

PATIENT
  Age: 13 Month
  Sex: Female
  Weight: 9.0719 kg

DRUGS (1)
  1. HYLAND'S TEETHING TABLETS [Suspect]
     Indication: TEETHING
     Dosage: AS NEEDED
     Dates: start: 20090705, end: 20090705

REACTIONS (5)
  - BLOOD GLUCOSE DECREASED [None]
  - DEHYDRATION [None]
  - KETOSIS [None]
  - LETHARGY [None]
  - SEDATION [None]
